FAERS Safety Report 9394589 (Version 2)
Quarter: 2016Q1

REPORT INFORMATION
  Report Type: Spontaneous
  Country: US (occurrence: US)
  Receive Date: 20130711
  Receipt Date: 20160329
  Transmission Date: 20160526
  Serious: Yes (Other)
  Sender: FDA-Public Use
  Company Number: PHEH2013US014467

PATIENT
  Age: 41 Year
  Sex: Female

DRUGS (9)
  1. TEKTURNA [Suspect]
     Active Substance: ALISKIREN HEMIFUMARATE
     Indication: BLOOD PRESSURE INCREASED
     Dosage: 150 MG
     Route: 048
     Dates: start: 20071008
  2. TEKTURNA [Suspect]
     Active Substance: ALISKIREN HEMIFUMARATE
     Indication: HYPERTENSION
     Dosage: 300 MG, QD
     Route: 048
     Dates: start: 20071114
  3. TEKTURNA [Suspect]
     Active Substance: ALISKIREN HEMIFUMARATE
     Indication: MALIGNANT HYPERTENSION
  4. DOXAZOSIN [Concomitant]
     Active Substance: DOXAZOSIN\DOXAZOSIN MESYLATE
     Indication: PRODUCT USED FOR UNKNOWN INDICATION
     Dosage: UNK
     Route: 065
  5. ZOLOFT [Concomitant]
     Active Substance: SERTRALINE HYDROCHLORIDE
     Indication: PRODUCT USED FOR UNKNOWN INDICATION
     Dosage: 150 MG
     Route: 065
  6. CARAFATE [Suspect]
     Active Substance: SUCRALFATE
     Indication: PRODUCT USED FOR UNKNOWN INDICATION
     Dosage: UNK
     Route: 065
  7. LASIX [Concomitant]
     Active Substance: FUROSEMIDE
     Indication: PRODUCT USED FOR UNKNOWN INDICATION
     Dosage: 80 MG
     Route: 065
  8. FLEXERIL [Concomitant]
     Active Substance: CYCLOBENZAPRINE HYDROCHLORIDE
     Indication: PRODUCT USED FOR UNKNOWN INDICATION
     Dosage: 5 MG
     Route: 065
  9. ZOLOFT [Concomitant]
     Active Substance: SERTRALINE HYDROCHLORIDE
     Dosage: 50 MG
     Route: 065

REACTIONS (18)
  - Hyperkalaemia [Unknown]
  - Panic disorder [Unknown]
  - Proteinuria [Unknown]
  - Coronary artery disease [Unknown]
  - Myocardial infarction [Unknown]
  - Depression [Unknown]
  - Peptic ulcer [Unknown]
  - Muscle spasms [Unknown]
  - Anxiety [Unknown]
  - Abdominal pain [Unknown]
  - Eye disorder [Unknown]
  - Fibrocystic breast disease [Unknown]
  - Sinusitis [Unknown]
  - Diarrhoea [Unknown]
  - Ischaemic cardiomyopathy [Unknown]
  - Gastrooesophageal reflux disease [Unknown]
  - End stage renal disease [Unknown]
  - Oedema [Unknown]

NARRATIVE: CASE EVENT DATE: 20080501
